FAERS Safety Report 4315289-7 (Version None)
Quarter: 2004Q1

REPORT INFORMATION
  Report Type: 
  Country: None (occurrence: None)
  Receive Date: 20040309
  Receipt Date: 20040225
  Transmission Date: 20041129
  Serious: Yes (Other)
  Sender: FDA-Public Use
  Company Number: USA040260285

PATIENT
  Sex: Female

DRUGS (1)
  1. HUMALOG [Suspect]
     Dosage: UNK
     Route: 065
     Dates: start: 19950101

REACTIONS (3)
  - CARDIAC DISORDER [None]
  - GLAUCOMA [None]
  - PNEUMONIA [None]
